FAERS Safety Report 9471486 (Version 1)
Quarter: 2013Q3

REPORT INFORMATION
  Report Type: Spontaneous
  Country: US (occurrence: None)
  Receive Date: 20130819
  Receipt Date: 20130819
  Transmission Date: 20140515
  Serious: Yes (Other)
  Sender: FDA-Public Use
  Company Number: ADR-2010-9566

PATIENT
  Age: 58 Year
  Sex: Female

DRUGS (2)
  1. BACLOFEN [Suspect]
     Indication: PAIN
     Dosage: SEE B5
  2. FENTANYL [Suspect]
     Dosage: 97.35 MCG/ML

REACTIONS (6)
  - Somnambulism [None]
  - Fall [None]
  - Device dislocation [None]
  - Device inversion [None]
  - Adverse drug reaction [None]
  - Pain [None]
